FAERS Safety Report 10607920 (Version 1)
Quarter: 2014Q4

REPORT INFORMATION
  Report Type: Spontaneous
  Country: US (occurrence: US)
  Receive Date: 20141125
  Receipt Date: 20141125
  Transmission Date: 20150529
  Serious: No
  Sender: FDA-Public Use
  Company Number: US-BRISTOL-MYERS SQUIBB COMPANY-21399076

PATIENT
  Age: 69 Year
  Sex: Male
  Weight: 113.38 kg

DRUGS (6)
  1. LISOPRIL PLUS [Concomitant]
  2. LIPITOR [Concomitant]
     Active Substance: ATORVASTATIN CALCIUM
  3. FARXIGA [Suspect]
     Active Substance: DAPAGLIFLOZIN PROPANEDIOL
     Indication: TYPE 2 DIABETES MELLITUS
     Dosage: FOR:TABLET?LAST DOSE:15-SEP-2014
  4. AMLODIPINE [Concomitant]
     Active Substance: AMLODIPINE BESYLATE
  5. JANUMET [Concomitant]
     Active Substance: METFORMIN HYDROCHLORIDE\SITAGLIPTIN PHOSPHATE
  6. TRICOR [Concomitant]
     Active Substance: FENOFIBRATE

REACTIONS (3)
  - Pruritus [Recovering/Resolving]
  - Drug ineffective [Unknown]
  - Urticaria [Not Recovered/Not Resolved]
